FAERS Safety Report 25381259 (Version 3)
Quarter: 2025Q2

REPORT INFORMATION
  Report Type: Spontaneous
  Country: SK (occurrence: SK)
  Receive Date: 20250530
  Receipt Date: 20250609
  Transmission Date: 20250716
  Serious: Yes (Hospitalization)
  Sender: PFIZER
  Company Number: SK-PFIZER INC-202500111111

PATIENT
  Age: 3 Year
  Sex: Male

DRUGS (2)
  1. LORLATINIB [Suspect]
     Active Substance: LORLATINIB
     Indication: Neuroblastoma
  2. LORLATINIB [Suspect]
     Active Substance: LORLATINIB
     Indication: Anaplastic lymphoma kinase gene mutation

REACTIONS (5)
  - Serum ferritin increased [Unknown]
  - Malignant neoplasm progression [Unknown]
  - Neuroblastoma [Unknown]
  - Off label use [Unknown]
  - Off label use [Unknown]
